FAERS Safety Report 14545516 (Version 3)
Quarter: 2020Q3

REPORT INFORMATION
  Report Type: Report from Study
  Country: CA (occurrence: CA)
  Receive Date: 20180219
  Receipt Date: 20180718
  Transmission Date: 20201105
  Serious: Yes (Other)
  Sender: FDA-Public Use
  Company Number: CA-ASTRAZENECA-2018SE19745

PATIENT
  Age: 66 Year
  Sex: Female

DRUGS (23)
  1. BION TEARS [Concomitant]
     Active Substance: DEXTRAN 70\HYPROMELLOSE 2910 (4000 MPA.S)
     Route: 065
     Dates: start: 1977
  2. VOLTAREN [Concomitant]
     Active Substance: DICLOFENAC SODIUM
     Route: 065
     Dates: start: 20170801
  3. TYLENOL EXTRA STRENGTH [Concomitant]
     Active Substance: ACETAMINOPHEN
     Route: 065
     Dates: start: 20171002
  4. RIVAROXABAN [Concomitant]
     Active Substance: RIVAROXABAN
     Route: 065
     Dates: start: 20170408
  5. IMODIUM [Concomitant]
     Active Substance: LOPERAMIDE HYDROCHLORIDE
     Route: 065
     Dates: start: 20180102
  6. GLUCOSAMINE [Concomitant]
     Active Substance: GLUCOSAMINE
     Route: 065
     Dates: start: 20180109
  7. CRESTOR [Concomitant]
     Active Substance: ROSUVASTATIN CALCIUM
     Route: 065
     Dates: start: 2006
  8. CODEINE [Concomitant]
     Active Substance: CODEINE
     Route: 065
     Dates: start: 20170901
  9. GRAVOL [Concomitant]
     Active Substance: DIMENHYDRINATE
     Route: 065
     Dates: start: 20171010
  10. RANITIDINE. [Concomitant]
     Active Substance: RANITIDINE
     Route: 065
     Dates: start: 20171121
  11. PROBIOTIC [Concomitant]
     Active Substance: PROBIOTICS NOS
     Route: 065
     Dates: start: 20180109
  12. COENZYME Q10 [Concomitant]
     Active Substance: DIETARY SUPPLEMENT\UBIDECARENONE
     Route: 065
     Dates: start: 20180109
  13. TREMELIMUMAB. [Suspect]
     Active Substance: TREMELIMUMAB
     Indication: OVARIAN CLEAR CELL CARCINOMA
     Route: 042
     Dates: start: 20161214, end: 20170308
  14. STREPSILS [Concomitant]
     Route: 065
     Dates: start: 20171008
  15. MULTIVITAMIN [Concomitant]
     Active Substance: VITAMINS
     Route: 065
     Dates: start: 20180109
  16. DURVALUMAB. [Suspect]
     Active Substance: DURVALUMAB
     Indication: OVARIAN CLEAR CELL CARCINOMA
     Route: 042
     Dates: start: 20161214, end: 20170308
  17. SYSTANE ES [Concomitant]
     Route: 065
     Dates: start: 1977
  18. MIRTAZAPINE. [Concomitant]
     Active Substance: MIRTAZAPINE
     Route: 065
     Dates: start: 2016
  19. RESTORALAX [Concomitant]
     Active Substance: POLYETHYLENE GLYCOL 3350
     Route: 065
     Dates: start: 20180104
  20. MAGNESIUM [Concomitant]
     Active Substance: MAGNESIUM
     Route: 065
     Dates: start: 20180109
  21. DURVALUMAB. [Suspect]
     Active Substance: DURVALUMAB
     Indication: OVARIAN CLEAR CELL CARCINOMA
     Route: 042
  22. ARNICA [Concomitant]
     Active Substance: ARNICA MONTANA FLOWER
     Route: 065
     Dates: start: 201707
  23. CALCIUM WITH VITAMIN D [Concomitant]
     Active Substance: CALCIUM\VITAMIN D
     Route: 065
     Dates: start: 20180109

REACTIONS (2)
  - Amyloidosis [Unknown]
  - Nephrotic syndrome [Unknown]

NARRATIVE: CASE EVENT DATE: 20180213
